FAERS Safety Report 8825774 (Version 2)
Quarter: 2012Q4

REPORT INFORMATION
  Report Type: 
  Country: US (occurrence: US)
  Receive Date: 20121004
  Receipt Date: 20121023
  Transmission Date: 20130627
  Serious: No
  Sender: FDA-Public Use
  Company Number: US-TEVA-361883USA

PATIENT
  Sex: Female

DRUGS (2)
  1. CLARAVIS [Suspect]
  2. ORAL CONTRACEPTIVE NOS [Concomitant]

REACTIONS (1)
  - Pregnancy test false positive [Unknown]
